FAERS Safety Report 5603284-7 (Version None)
Quarter: 2008Q1

REPORT INFORMATION
  Report Type: 
  Country: None (occurrence: None)
  Receive Date: 20080122
  Receipt Date: 20080110
  Transmission Date: 20080703
  Serious: Yes (Death, Life-Threatening, Hospitalization)
  Sender: FDA-Public Use
  Company Number: E2020-02001-SPO-JP

PATIENT
  Age: 78 Year
  Sex: Female
  Weight: 42.4 kg

DRUGS (3)
  1. ARICEPT [Suspect]
     Indication: DEMENTIA ALZHEIMER'S TYPE
     Dosage: 5 MG, 1 IN 1 D, ORAL
     Route: 048
     Dates: start: 20071009, end: 20071026
  2. SINEMET [Concomitant]
  3. METHYCOBAL (MECOBALAMIN) [Concomitant]

REACTIONS (11)
  - ASCITES [None]
  - BLOOD GLUCOSE INCREASED [None]
  - CHRONIC HEPATITIS [None]
  - COAGULOPATHY [None]
  - DEHYDRATION [None]
  - DEPRESSED LEVEL OF CONSCIOUSNESS [None]
  - FEELING ABNORMAL [None]
  - HEPATIC ATROPHY [None]
  - HEPATIC FAILURE [None]
  - HYPERAMMONAEMIA [None]
  - RHABDOMYOLYSIS [None]
